FAERS Safety Report 23821654 (Version 3)
Quarter: 2024Q3

REPORT INFORMATION
  Report Type: Spontaneous
  Country: US (occurrence: US)
  Receive Date: 20240506
  Receipt Date: 20240705
  Transmission Date: 20241017
  Serious: No
  Sender: PFIZER
  Company Number: US-PFIZER INC-PV202400056245

PATIENT
  Sex: Female

DRUGS (1)
  1. BICILLIN C-R 900/300 [Suspect]
     Active Substance: PENICILLIN G BENZATHINE\PENICILLIN G PROCAINE
     Dosage: UNK

REACTIONS (2)
  - Device use error [Unknown]
  - Device breakage [Unknown]
